FAERS Safety Report 13775110 (Version 2)
Quarter: 2017Q3

REPORT INFORMATION
  Report Type: Spontaneous
  Country: JP (occurrence: JP)
  Receive Date: 20170721
  Receipt Date: 20170728
  Transmission Date: 20171127
  Serious: Yes (Death)
  Sender: FDA-Public Use
  Company Number: JP-PURDUE PHARMA-GBR-2017-0046472

PATIENT
  Age: 51 Year
  Sex: Male

DRUGS (1)
  1. MS CONTIN [Suspect]
     Active Substance: MORPHINE SULFATE
     Indication: HEPATIC CANCER
     Dosage: 20 MG, DAILY
     Route: 048

REACTIONS (2)
  - Constipation [Recovered/Resolved]
  - Hepatic cancer [Fatal]

NARRATIVE: CASE EVENT DATE: 20170601
